FAERS Safety Report 25292615 (Version 2)
Quarter: 2025Q2

REPORT INFORMATION
  Report Type: Spontaneous
  Country: US (occurrence: US)
  Receive Date: 20250510
  Receipt Date: 20250626
  Transmission Date: 20250716
  Serious: No
  Sender: SANOFI AVENTIS
  Company Number: US-SA-2025SA123319

PATIENT
  Sex: Male

DRUGS (2)
  1. DUPIXENT [Suspect]
     Active Substance: DUPILUMAB
     Indication: Dermatitis atopic
     Dosage: 300 MG, QOW
     Route: 058
  2. COLCHICINE [Concomitant]
     Active Substance: COLCHICINE

REACTIONS (2)
  - Rash [Not Recovered/Not Resolved]
  - Injection site reaction [Not Recovered/Not Resolved]
